FAERS Safety Report 10196914 (Version 1)
Quarter: 2014Q2

REPORT INFORMATION
  Report Type: Spontaneous
  Country: US (occurrence: None)
  Receive Date: 20140523
  Receipt Date: 20140523
  Transmission Date: 20141212
  Serious: No
  Sender: FDA-Public Use
  Company Number: None

PATIENT
  Age: 5 Year
  Sex: Male
  Weight: 18.1 kg

DRUGS (2)
  1. INTERLEUKIN-2 [Suspect]
     Dates: end: 20140519
  2. ALDESLEUKIN [Suspect]

REACTIONS (2)
  - Device related infection [None]
  - Urine output decreased [None]
